FAERS Safety Report 9847994 (Version 1)
Quarter: 2014Q1

REPORT INFORMATION
  Report Type: Spontaneous
  Country: DE (occurrence: DE)
  Receive Date: 20140128
  Receipt Date: 20140128
  Transmission Date: 20141002
  Serious: Yes (Hospitalization)
  Sender: FDA-Public Use
  Company Number: DE-VERTEX PHARMACEUTICALS INC-2014-000386

PATIENT
  Age: 53 Year
  Sex: Female

DRUGS (8)
  1. INCIVO [Suspect]
     Indication: CHRONIC HEPATITIS C
     Dosage: 2250 MG, QD
     Route: 048
     Dates: start: 20130115, end: 20130409
  2. PEGINTERFERON ALFA-2A [Suspect]
     Indication: CHRONIC HEPATITIS C
     Dosage: 180 ?G, QW
     Route: 058
     Dates: start: 20130115, end: 20131217
  3. RIBAVIRIN [Suspect]
     Indication: CHRONIC HEPATITIS C
     Dosage: 1200 MG, QW
     Route: 048
     Dates: start: 20130115, end: 20131217
  4. AMLODIPINE [Concomitant]
     Indication: HYPERTENSION
     Dosage: DOSAGE FORM: UNSPECIFIED
     Route: 048
  5. LANTUS [Concomitant]
     Indication: DIABETES MELLITUS
     Dosage: DOSAGE FORM: UNSPECIFIED
     Route: 058
  6. LIPROLOG [Concomitant]
     Indication: DIABETES MELLITUS
     Dosage: DOSAGE FORM: UNSPECIFIED
     Route: 058
  7. DOCITON [Concomitant]
     Indication: VARICOSE VEIN
     Dosage: DOSAGE FORM: UNSPECIFIED
     Route: 048
  8. SPIRONOLACTONE [Concomitant]
     Indication: ASCITES
     Dosage: UNK, QD
     Route: 048

REACTIONS (4)
  - Stoma site haemorrhage [Recovered/Resolved]
  - Haemorrhagic anaemia [Unknown]
  - Pancytopenia [Unknown]
  - Anaemia [Recovered/Resolved]
